FAERS Safety Report 8861356 (Version 1)
Quarter: 2012Q4

REPORT INFORMATION
  Report Type: 
  Country: FR (occurrence: FR)
  Receive Date: 20121026
  Receipt Date: 20121026
  Transmission Date: 20130627
  Serious: Yes (Hospitalization)
  Sender: FDA-Public Use
  Company Number: FR-MERCK-1210FRA011611

PATIENT
  Sex: Male

DRUGS (4)
  1. JANUMET [Suspect]
     Indication: TYPE 2 DIABETES MELLITUS
     Dosage: 2 DF, qd
     Route: 048
     Dates: start: 201107
  2. GLUCOR [Concomitant]
     Indication: TYPE 2 DIABETES MELLITUS
     Dosage: UNK
  3. HEMI-DAONIL [Concomitant]
     Indication: TYPE 2 DIABETES MELLITUS
     Dosage: UNK
  4. SIMVASTATIN [Concomitant]
     Dosage: UNK

REACTIONS (2)
  - Depression [Recovering/Resolving]
  - Weight decreased [Recovering/Resolving]
